FAERS Safety Report 4832297-8 (Version None)
Quarter: 2005Q4

REPORT INFORMATION
  Report Type: 
  Country: None (occurrence: None)
  Receive Date: 20051116
  Receipt Date: 20051116
  Transmission Date: 20060501
  Serious: No
  Sender: FDA-Public Use
  Company Number: None

PATIENT
  Age: 26 Year
  Sex: Female
  Weight: 67 kg

DRUGS (2)
  1. SPRINTEC [Suspect]
     Indication: CONTRACEPTION
     Dosage: SPRINTEC ONE PO QD PO
     Route: 048
     Dates: start: 20050101, end: 20050401
  2. SPRINTEC [Suspect]
     Indication: CONTRACEPTION
     Dosage: SPRINTEC ONE PO QD PO
     Route: 048
     Dates: start: 20050901, end: 20051001

REACTIONS (4)
  - CRYING [None]
  - DEPRESSION [None]
  - MOOD ALTERED [None]
  - THERAPEUTIC RESPONSE UNEXPECTED WITH DRUG SUBSTITUTION [None]
